FAERS Safety Report 19820456 (Version 1)
Quarter: 2021Q3

REPORT INFORMATION
  Report Type: Spontaneous
  Country: US (occurrence: US)
  Receive Date: 20210910
  Receipt Date: 20210910
  Transmission Date: 20211014
  Serious: Yes (Disabling)
  Sender: FDA-Public Use
  Company Number: None

PATIENT
  Age: 74 Year
  Sex: Male
  Weight: 81 kg

DRUGS (6)
  1. TAMULOSIN [Concomitant]
     Active Substance: TAMSULOSIN
  2. INBRIJA [Suspect]
     Active Substance: LEVODOPA
     Indication: DEMENTIA
     Dosage: ?          QUANTITY:2 INHALATION(S);?
     Route: 055
     Dates: start: 20210731, end: 20210909
  3. SINEMENT [Concomitant]
  4. NUPLAZID [Concomitant]
     Active Substance: PIMAVANSERIN TARTRATE
  5. TYLENOL [Concomitant]
     Active Substance: ACETAMINOPHEN
  6. MYRBETRIQUE [Concomitant]

REACTIONS (2)
  - Faeces soft [None]
  - Incontinence [None]

NARRATIVE: CASE EVENT DATE: 20200909
